FAERS Safety Report 5839401-3 (Version None)
Quarter: 2008Q3

REPORT INFORMATION
  Report Type: 
  Country: None (occurrence: None)
  Receive Date: 20080806
  Receipt Date: 20080728
  Transmission Date: 20090109
  Serious: Yes (Other)
  Sender: FDA-Public Use
  Company Number: GXKR2008ES07049

PATIENT
  Age: 66 Year
  Sex: Female

DRUGS (4)
  1. AMANTADINE             (AMANTADINE) UNKNOWN [Suspect]
     Indication: PARKINSON'S DISEASE
     Dosage: 100 MG, BID
  2. CARBIDOPA W/LEVODOPA       (CARBIDOPA, LEVODOPA) [Concomitant]
  3. CABERGOLINE [Concomitant]
  4. ENTACAPONE (ENTACAPONE) [Concomitant]

REACTIONS (6)
  - ANOREXIA [None]
  - ASTHENIA [None]
  - INAPPROPRIATE ANTIDIURETIC HORMONE SECRETION [None]
  - LETHARGY [None]
  - MUSCULAR WEAKNESS [None]
  - WEIGHT DECREASED [None]
